FAERS Safety Report 16287366 (Version 1)
Quarter: 2019Q2

REPORT INFORMATION
  Report Type: Spontaneous
  Country: KR (occurrence: KR)
  Receive Date: 20190508
  Receipt Date: 20190508
  Transmission Date: 20190711
  Serious: Yes (Hospitalization)
  Sender: FDA-Public Use
  Company Number: KR-009507513-1904KOR001891

PATIENT
  Sex: Female

DRUGS (10)
  1. MORPHINE HCL JEIL [Concomitant]
     Dosage: QUANTITY 1 DAYS 1
     Dates: start: 20190319, end: 20190319
  2. KEYTRUDA [Suspect]
     Active Substance: PEMBROLIZUMAB
     Indication: BREAST CANCER
     Dosage: 200 MG, QUANTITY 2  DAYS 1
     Dates: start: 20190409
  3. NEXIUM [Concomitant]
     Active Substance: ESOMEPRAZOLE MAGNESIUM
     Dosage: QUANTITY 1 DAYS 7
     Dates: start: 20190314, end: 20190319
  4. SMOFKABIVEN [Concomitant]
     Active Substance: AMINO ACIDS\DEXTROSE\ELECTROLYTES NOS\SOYBEAN OIL
     Dosage: QUANTITY 1 DAYS 6
     Dates: start: 20190314, end: 20190319
  5. TAMIPOOL [Concomitant]
     Active Substance: VITAMINS
     Dosage: QUANTITY 1 DAYS 8
     Dates: start: 20190313, end: 20190319
  6. MATRIFEN [Concomitant]
     Active Substance: FENTANYL
     Dosage: 50 MCG/H, QUANTITY 1 DAYS 1
     Dates: start: 20190316, end: 20190320
  7. SODIUM CHLORIDE. [Concomitant]
     Active Substance: SODIUM CHLORIDE
     Dosage: 50 ML, QUANTITY 1 DAYS 8
     Dates: start: 20190314, end: 20190319
  8. SODIUM CHLORIDE. [Concomitant]
     Active Substance: SODIUM CHLORIDE
     Dosage: 50ML, QUANTITY 1 DAYS 4
     Dates: start: 20190317, end: 20190319
  9. KEYTRUDA [Suspect]
     Active Substance: PEMBROLIZUMAB
     Indication: OVARIAN CANCER
     Dosage: 200 MG, QUANTITY 2  DAYS 1
     Dates: start: 20190319
  10. MORPHINE HYDROCHLORIDE [Concomitant]
     Active Substance: MORPHINE HYDROCHLORIDE
     Dosage: QUANTITY 5 DAYS 7
     Dates: start: 20190314, end: 20190319

REACTIONS (2)
  - Product use in unapproved indication [Unknown]
  - Adverse event [Unknown]

NARRATIVE: CASE EVENT DATE: 20190319
